FAERS Safety Report 23586524 (Version 1)
Quarter: 2024Q1

REPORT INFORMATION
  Report Type: Spontaneous
  Country: US (occurrence: US)
  Receive Date: 20240301
  Receipt Date: 20240301
  Transmission Date: 20240409
  Serious: Yes (Hospitalization)
  Sender: FDA-Public Use
  Company Number: US-SK LIFE SCIENCE, INC.-SKPVG-2024-000303

PATIENT

DRUGS (2)
  1. XCOPRI [Suspect]
     Active Substance: CENOBAMATE
     Indication: Product used for unknown indication
     Dosage: 25 MILLIGRAM
     Route: 065
     Dates: start: 20240219
  2. XCOPRI [Suspect]
     Active Substance: CENOBAMATE
     Dosage: 50MG TWICE DAILY
     Route: 065

REACTIONS (5)
  - Illness [Unknown]
  - Ill-defined disorder [Unknown]
  - Off label use [Not Recovered/Not Resolved]
  - Drug titration error [Unknown]
  - Incorrect route of product administration [Not Recovered/Not Resolved]

NARRATIVE: CASE EVENT DATE: 20240201
